FAERS Safety Report 6804218-X (Version None)
Quarter: 2010Q2

REPORT INFORMATION
  Report Type: 
  Country: None (occurrence: None)
  Receive Date: 20100628
  Receipt Date: 20070208
  Transmission Date: 20101027
  Serious: Yes (Other)
  Sender: FDA-Public Use
  Company Number: US-PFIZER INC-2007011625

PATIENT
  Sex: Male
  Weight: 73.5 kg

DRUGS (2)
  1. SUTENT [Suspect]
     Dosage: QD: EVERY DAY
     Dates: start: 20070110, end: 20070205
  2. COSOPT [Concomitant]

REACTIONS (7)
  - ASTHENIA [None]
  - BONE PAIN [None]
  - DYSGEUSIA [None]
  - GAIT DISTURBANCE [None]
  - GLOSSITIS [None]
  - PRURITUS [None]
  - WEIGHT DECREASED [None]
